FAERS Safety Report 16058951 (Version 3)
Quarter: 2019Q1

REPORT INFORMATION
  Report Type: Spontaneous
  Country: DE (occurrence: DE)
  Receive Date: 20190311
  Receipt Date: 20190311
  Transmission Date: 20190418
  Serious: Yes (Death, Hospitalization)
  Sender: FDA-Public Use
  Company Number: PHHY2019DE050706

PATIENT

DRUGS (3)
  1. BETAMETHASONE. [Suspect]
     Active Substance: BETAMETHASONE
     Indication: FOETAL EXPOSURE DURING PREGNANCY
     Dosage: MOTHER DOSE: 12 MG
     Route: 064
  2. PREDNISOLONE. [Suspect]
     Active Substance: PREDNISOLONE
     Indication: FOETAL EXPOSURE DURING PREGNANCY
     Dosage: MOTHER DOSE: 5 MG, QD
     Route: 064
  3. PARTUSISTEN [Suspect]
     Active Substance: FENOTEROL
     Indication: FOETAL EXPOSURE DURING PREGNANCY
     Dosage: MOTHER DOSE: 25 UG
     Route: 064

REACTIONS (8)
  - Premature baby [Fatal]
  - Pulmonary haemorrhage [Fatal]
  - Thrombocytopenia neonatal [Fatal]
  - Foetal exposure during pregnancy [Unknown]
  - Low birth weight baby [Fatal]
  - Hypotonia neonatal [Fatal]
  - Neonatal anuria [Fatal]
  - Leukopenia neonatal [Fatal]
